FAERS Safety Report 4447819-9 (Version None)
Quarter: 2004Q3

REPORT INFORMATION
  Report Type: 
  Country: None (occurrence: None)
  Receive Date: 20040817
  Receipt Date: 20040401
  Transmission Date: 20050211
  Serious: Yes (Hospitalization)
  Sender: FDA-Public Use
  Company Number: MEDI-0001636 (0)

PATIENT
  Age: 3 Month
  Sex: Female

DRUGS (3)
  1. SYNAGIS [Suspect]
     Indication: ANTIVIRAL PROPHYLAXIS
     Dosage: 38 MG, 1 IN 30 D, INTRAMUSCULAR; 45 MG, 1 IN 30 D, INTRAMUSCULAR
     Route: 030
     Dates: start: 20031130, end: 20031230
  2. SYNAGIS [Suspect]
     Indication: ANTIVIRAL PROPHYLAXIS
     Dosage: 38 MG, 1 IN 30 D, INTRAMUSCULAR; 45 MG, 1 IN 30 D, INTRAMUSCULAR
     Route: 030
     Dates: start: 20031130
  3. SYNAGIS [Suspect]
     Indication: ANTIVIRAL PROPHYLAXIS
     Dosage: 38 MG, 1 IN 30 D, INTRAMUSCULAR; 45 MG, 1 IN 30 D, INTRAMUSCULAR
     Route: 030
     Dates: start: 20040214

REACTIONS (1)
  - RESPIRATORY SYNCYTIAL VIRUS INFECTION [None]
